FAERS Safety Report 7942896-2 (Version None)
Quarter: 2011Q4

REPORT INFORMATION
  Report Type: 
  Country: None (occurrence: None)
  Receive Date: 20111128
  Receipt Date: 20111115
  Transmission Date: 20120403
  Serious: Yes (Hospitalization, Other)
  Sender: FDA-Public Use
  Company Number: IT-ELI_LILLY_AND_COMPANY-IT201111004900

PATIENT
  Sex: Female

DRUGS (4)
  1. CYMBALTA [Suspect]
     Dosage: 1680 MG, SINGLE
     Route: 048
     Dates: start: 20110811, end: 20110811
  2. LORAZEPAM [Concomitant]
     Dosage: 2.5 MG, UNKNOWN
  3. LORAZEPAM [Concomitant]
     Dosage: 12.5 MG, SINGLE
     Route: 048
     Dates: start: 20110811, end: 20110811
  4. CYMBALTA [Suspect]
     Dosage: 60 MG, UNKNOWN

REACTIONS (5)
  - SUICIDE ATTEMPT [None]
  - INTENTIONAL OVERDOSE [None]
  - HYPONATRAEMIA [None]
  - SOPOR [None]
  - SLOW SPEECH [None]
